FAERS Safety Report 6490373-0 (Version None)
Quarter: 2009Q4

REPORT INFORMATION
  Report Type: 
  Country: None (occurrence: None)
  Receive Date: 20091211
  Receipt Date: 20091208
  Transmission Date: 20100525
  Serious: No
  Sender: FDA-Public Use
  Company Number: B0609899A

PATIENT
  Sex: Female

DRUGS (2)
  1. RELENZA [Suspect]
     Indication: H1N1 INFLUENZA
     Dosage: 600MG PER DAY
     Route: 042
     Dates: start: 20091105, end: 20091105
  2. RELENZA [Concomitant]
     Route: 055
     Dates: start: 20091104

REACTIONS (1)
  - DRUG EXPOSURE DURING PREGNANCY [None]
